FAERS Safety Report 8464337 (Version 3)
Quarter: 2012Q4

REPORT INFORMATION
  Report Type: 
  Country: US (occurrence: US)
  Receive Date: 20120319
  Receipt Date: 20121210
  Transmission Date: 20130627
  Serious: Yes (Hospitalization)
  Sender: FDA-Public Use
  Company Number: US-BIOGENIDEC-2012BI008655

PATIENT
  Age: 54 Year
  Sex: Female

DRUGS (1)
  1. TYSABRI [Suspect]
     Indication: MULTIPLE SCLEROSIS
     Route: 042
     Dates: start: 20110106

REACTIONS (7)
  - Hypoaesthesia [Not Recovered/Not Resolved]
  - Upper respiratory tract congestion [Recovered/Resolved]
  - Fatigue [Unknown]
  - Escherichia urinary tract infection [Recovered/Resolved]
  - Hypertension [Recovered/Resolved]
  - Urinary tract infection [Recovered/Resolved]
  - Weight increased [Unknown]
